FAERS Safety Report 4349336-3 (Version None)
Quarter: 2004Q2

REPORT INFORMATION
  Report Type: 
  Country: None (occurrence: None)
  Receive Date: 20040428
  Receipt Date: 20040402
  Transmission Date: 20050107
  Serious: Yes (Other)
  Sender: FDA-Public Use
  Company Number: PHEH2004US03803

PATIENT
  Age: 47 Year
  Sex: Female
  Weight: 57 kg

DRUGS (4)
  1. ZELNORM [Suspect]
     Indication: IRRITABLE BOWEL SYNDROME
     Dosage: 2 MG, QD
     Route: 048
  2. ZOLOFT [Concomitant]
     Indication: DEPRESSION
     Dates: start: 19990101
  3. SEROQUEL [Concomitant]
     Indication: SLEEP DISORDER
  4. KLONOPIN [Concomitant]

REACTIONS (9)
  - ABDOMINAL DISTENSION [None]
  - ABDOMINAL PAIN LOWER [None]
  - FLANK PAIN [None]
  - GASTROINTESTINAL MOTILITY DISORDER [None]
  - INTESTINAL DILATATION [None]
  - INTESTINAL HYPERMOTILITY [None]
  - INTESTINAL HYPOMOTILITY [None]
  - PELVIC PAIN [None]
  - ULTRASOUND ABDOMEN ABNORMAL [None]
